FAERS Safety Report 16063688 (Version 2)
Quarter: 2019Q2

REPORT INFORMATION
  Report Type: Report from Study
  Country: JP (occurrence: JP)
  Receive Date: 20190312
  Receipt Date: 20190401
  Transmission Date: 20190711
  Serious: Yes (Life-Threatening, Other)
  Sender: FDA-Public Use
  Company Number: JP-ACTELION-A-CH2019-187091

PATIENT
  Age: 79 Year
  Sex: Male

DRUGS (9)
  1. WARFARIN [Suspect]
     Active Substance: WARFARIN
     Dosage: UNK
     Route: 048
     Dates: start: 20181205, end: 20181211
  2. OPSUMIT [Suspect]
     Active Substance: MACITENTAN
     Indication: PULMONARY ARTERIAL HYPERTENSION
     Dosage: 10 MG, QD
     Route: 048
     Dates: start: 20180928, end: 20181211
  3. SELARA [Concomitant]
     Active Substance: EPLERENONE
  4. WARFARIN [Suspect]
     Active Substance: WARFARIN
     Indication: EMBOLISM
     Dosage: 2.5 MG, QD
     Route: 048
     Dates: start: 20180928
  5. FUROSEMIDE. [Concomitant]
     Active Substance: FUROSEMIDE
  6. FLUITRAN [Concomitant]
     Active Substance: TRICHLORMETHIAZIDE
  7. OXYGEN. [Concomitant]
     Active Substance: OXYGEN
  8. SAMSCA [Concomitant]
     Active Substance: TOLVAPTAN
  9. PREDONINE [Concomitant]
     Active Substance: PREDNISOLONE

REACTIONS (14)
  - Transfusion [Unknown]
  - Haemorrhage subcutaneous [Unknown]
  - Haemoglobin decreased [Unknown]
  - Decreased appetite [Unknown]
  - Haemorrhagic diathesis [Unknown]
  - Gastrointestinal haemorrhage [Unknown]
  - Metastatic gastric cancer [Unknown]
  - Lung infection [Unknown]
  - Faeces discoloured [Unknown]
  - Dyspnoea [Unknown]
  - Occult blood positive [Unknown]
  - Malaise [Unknown]
  - Anaemia [Unknown]
  - Wheezing [Unknown]

NARRATIVE: CASE EVENT DATE: 201811
